FAERS Safety Report 4866155-X (Version None)
Quarter: 2005Q4

REPORT INFORMATION
  Report Type: 
  Country: None (occurrence: None)
  Receive Date: 20051227
  Receipt Date: 20051115
  Transmission Date: 20060501
  Serious: Yes (Other)
  Sender: FDA-Public Use
  Company Number: GBWYE141815NOV05

PATIENT
  Sex: Female

DRUGS (17)
  1. ENBREL [Suspect]
     Indication: DRUG USE FOR UNKNOWN INDICATION
     Route: 058
     Dates: start: 20040917, end: 20051115
  2. ORAMORPH SR [Concomitant]
  3. MORPHINE SULFATE [Concomitant]
  4. TEMAZEPAM [Concomitant]
  5. ISONIAZID [Concomitant]
  6. RAMIPRIL [Concomitant]
  7. ALENDRONATE SODIUM [Concomitant]
  8. CITALOPRAM HYDROBROMIDE [Concomitant]
  9. SIMVASTATIN [Concomitant]
  10. BECLOMETHASONE DIPROPIONATE [Concomitant]
  11. MIRTAZAPINE [Concomitant]
  12. DETENSIEL [Concomitant]
  13. FRUSEMIDE [Concomitant]
  14. ASPIRIN [Concomitant]
  15. PREDNISOLONE [Concomitant]
  16. FERROUS SULFATE TAB [Concomitant]
  17. PARACETAMOL [Concomitant]

REACTIONS (2)
  - INFECTION [None]
  - VASCULITIS [None]
